FAERS Safety Report 9280287 (Version 1)
Quarter: 2013Q2

REPORT INFORMATION
  Report Type: Spontaneous
  Country: AT (occurrence: AT)
  Receive Date: 20130509
  Receipt Date: 20130509
  Transmission Date: 20140414
  Serious: Yes (Other)
  Sender: FDA-Public Use
  Company Number: AT-MILLENNIUM PHARMACEUTICALS, INC.-2013-03487

PATIENT
  Sex: 0

DRUGS (12)
  1. VELCADE [Suspect]
     Indication: PLASMACYTOMA
     Dosage: 2.6 MG, UNK
     Route: 065
     Dates: start: 20120601, end: 20120611
  2. BENDAMUSTINE [Suspect]
     Indication: B-CELL LYMPHOMA
     Dosage: 360 MG, CYCLIC
     Route: 042
     Dates: start: 20110609, end: 20111122
  3. RITUXIMAB [Concomitant]
     Indication: PRODUCT USED FOR UNKNOWN INDICATION
     Dosage: 740 MG, CYCLIC
     Route: 042
     Dates: start: 20110608, end: 20120117
  4. DEXAMETHASONE                      /00016002/ [Concomitant]
     Indication: PLASMACYTOMA
     Dosage: UNK
     Dates: start: 20120601, end: 20120611
  5. PANTOLOC                           /01263201/ [Concomitant]
     Dosage: 40 MG, UNK
  6. PANTOLOC                           /01263201/ [Concomitant]
     Dosage: 20 MG, UNK
  7. SIMVASTATIN [Concomitant]
     Dosage: 40 UNK, UNK
     Dates: start: 20110601
  8. SYSTEN                             /00045401/ [Concomitant]
     Dosage: 50 UG, UNK
  9. LASIX                              /00032601/ [Concomitant]
     Dosage: 20 UNK, UNK
     Dates: start: 20120111
  10. GUTTALAX [Concomitant]
     Dosage: 15 GGT
     Dates: start: 20110831
  11. BLOPRESS [Concomitant]
     Dosage: 8 MG, UNK
     Dates: start: 201106
  12. SELOKEN                            /00376902/ [Concomitant]
     Dosage: 47.5 UNK, UNK

REACTIONS (1)
  - Non-small cell lung cancer [Not Recovered/Not Resolved]
